FAERS Safety Report 9822741 (Version 3)
Quarter: 2014Q2

REPORT INFORMATION
  Report Type: Report from Study
  Country: US (occurrence: US)
  Receive Date: 20140116
  Receipt Date: 20140408
  Transmission Date: 20141212
  Serious: Yes (Death, Hospitalization, Other)
  Sender: FDA-Public Use
  Company Number: US-ROCHE-1334336

PATIENT
  Age: 86 Year
  Sex: Female

DRUGS (15)
  1. LUCENTIS [Suspect]
     Indication: AGE-RELATED MACULAR DEGENERATION
     Route: 042
     Dates: start: 20130924, end: 20130924
  2. AVASTIN [Suspect]
     Indication: AGE-RELATED MACULAR DEGENERATION
     Route: 050
     Dates: start: 20110403, end: 20130908
  3. AVASTIN [Suspect]
     Indication: AGE-RELATED MACULAR DEGENERATION
     Route: 050
  4. CEFTIN [Concomitant]
     Indication: ANTIBIOTIC THERAPY
     Route: 065
  5. CEFTAZIDIME [Concomitant]
     Dosage: O.S
     Route: 065
  6. RANITIDINE [Concomitant]
     Indication: HYPERCHLORHYDRIA
     Route: 065
  7. DILTIAZEM [Concomitant]
     Indication: BLOOD PRESSURE
     Route: 065
  8. PLAVIX [Concomitant]
     Route: 065
  9. DIOVAN [Concomitant]
     Indication: BLOOD PRESSURE
     Route: 065
  10. CARAFATE [Concomitant]
     Indication: GASTRIC ULCER
     Route: 065
  11. PANTOPRAZOLE [Concomitant]
     Indication: GASTRIC ULCER
     Route: 065
  12. TRAMADOL [Concomitant]
     Indication: PAIN
     Route: 065
  13. PROCHLORPERAZINE [Concomitant]
     Indication: NAUSEA
     Route: 065
  14. MECLIZINE [Concomitant]
     Indication: DIZZINESS
     Route: 065
  15. MONTELUKAST [Concomitant]
     Route: 065

REACTIONS (4)
  - Death [Fatal]
  - Endophthalmitis [Unknown]
  - Pneumonia [Unknown]
  - Lung infection [Unknown]
